FAERS Safety Report 9869906 (Version 1)
Quarter: 2014Q1

REPORT INFORMATION
  Report Type: Spontaneous
  Country: US (occurrence: None)
  Receive Date: 20140203
  Receipt Date: 20140203
  Transmission Date: 20141002
  Serious: Yes (Life-Threatening, Hospitalization)
  Sender: FDA-Public Use
  Company Number: None

PATIENT
  Age: 43 Year
  Sex: Female
  Weight: 60.7 kg

DRUGS (14)
  1. USTEKINUMAB [Suspect]
     Indication: UNRESPONSIVE TO STIMULI
     Route: 058
     Dates: start: 20131012
  2. ACYCLOVIR [Concomitant]
  3. CALCIUM CARBONATE [Concomitant]
  4. CLOBETASOL [Concomitant]
  5. DESONIDE [Concomitant]
  6. FERROUS SULFATE [Concomitant]
  7. FLUOXETINE [Concomitant]
  8. GABAPENTIN [Concomitant]
  9. LIDOCAINE [Concomitant]
  10. MORPHINE [Concomitant]
  11. MORPHINE ER [Concomitant]
  12. POTASSIUM CHLORIDE ER [Concomitant]
  13. PROMETHAZINE [Concomitant]
  14. SENNOSIDES ORAL (LAXATIVE-SENNA) [Concomitant]

REACTIONS (1)
  - Pneumonitis [None]
